FAERS Safety Report 8016859-5 (Version None)
Quarter: 2012Q1

REPORT INFORMATION
  Report Type: 
  Country: None (occurrence: None)
  Receive Date: 20120102
  Receipt Date: 20111220
  Transmission Date: 20120608
  Serious: Yes (Other)
  Sender: FDA-Public Use
  Company Number: PHHY2011AU106004

PATIENT
  Sex: Male

DRUGS (2)
  1. CLOZARIL [Suspect]
  2. CLOZARIL [Suspect]
     Dosage: 175 MG
     Dates: start: 20111103

REACTIONS (3)
  - TOOTH INFECTION [None]
  - EOSINOPHIL COUNT INCREASED [None]
  - TOOTH DISORDER [None]
